FAERS Safety Report 7723680-1 (Version None)
Quarter: 2011Q3

REPORT INFORMATION
  Report Type: 
  Country: None (occurrence: None)
  Receive Date: 20110901
  Receipt Date: 20110819
  Transmission Date: 20111222
  Serious: No
  Sender: FDA-Public Use
  Company Number: CA-ELI_LILLY_AND_COMPANY-CA201108006104

PATIENT
  Sex: Male

DRUGS (17)
  1. ZYPREXA [Suspect]
     Dosage: 10 MG, QD
  2. ZYPREXA [Suspect]
     Dosage: 2.5 MG, QD
  3. VALPROATE SODIUM [Concomitant]
  4. HALDOL [Concomitant]
  5. ZYPREXA [Suspect]
     Dosage: 7.5 MG, QD
  6. SERTRALINE HYDROCHLORIDE [Concomitant]
  7. ZYPREXA [Suspect]
     Indication: SCHIZOAFFECTIVE DISORDER
     Dosage: 15 MG, QD
  8. CLOZAPINE [Concomitant]
  9. ZYPREXA [Suspect]
     Dosage: 5 MG, UNK
  10. ZYPREXA [Suspect]
     Dosage: 5 MG, QD
  11. NALTREXONE HYDROCHLORIDE [Concomitant]
  12. ZYPREXA [Suspect]
     Dosage: 20 MG, QD
  13. TRAZODONE HYDROCHLORIDE [Concomitant]
  14. LITHIUM CARBONATE [Concomitant]
  15. TOPAMAX [Concomitant]
  16. ZYPREXA [Suspect]
     Dosage: 25 MG, QD
  17. ZYPREXA [Suspect]
     Dosage: 12.5 MG, QD

REACTIONS (7)
  - DIABETES MELLITUS [None]
  - HEART RATE INCREASED [None]
  - BLOOD CHOLESTEROL INCREASED [None]
  - OVERDOSE [None]
  - BLOOD TRIGLYCERIDES INCREASED [None]
  - BLOOD GLUCOSE INCREASED [None]
  - WHITE BLOOD CELL COUNT INCREASED [None]
